FAERS Safety Report 25452636 (Version 3)
Quarter: 2025Q3

REPORT INFORMATION
  Report Type: Spontaneous
  Country: JP (occurrence: JP)
  Receive Date: 20250618
  Receipt Date: 20250806
  Transmission Date: 20251021
  Serious: Yes (Death, Hospitalization, Other)
  Sender: MERCK SHARP & DOHME LLC
  Company Number: JP-MSD-M2024-46577

PATIENT
  Age: 6 Decade
  Sex: Female

DRUGS (6)
  1. KEYTRUDA [Suspect]
     Active Substance: PEMBROLIZUMAB
     Indication: Triple negative breast cancer
     Dates: start: 202403
  2. KEYTRUDA [Suspect]
     Active Substance: PEMBROLIZUMAB
     Indication: Triple negative breast cancer
     Dosage: DOSE DESCRIPTION : 200 MILLIGRAM, Q3W
     Route: 041
     Dates: start: 202307, end: 202411
  3. CARBOPLATIN [Suspect]
     Active Substance: CARBOPLATIN
     Indication: Triple negative breast cancer
     Dosage: DOSE DESCRIPTION : 5 MILLIGRAM, Q3W, AUC5
     Route: 041
     Dates: start: 202307, end: 202310
  4. PACLITAXEL [Suspect]
     Active Substance: PACLITAXEL
     Indication: Triple negative breast cancer
     Dosage: DOSE DESCRIPTION : 80 MILLIGRAM, QW
     Route: 041
     Dates: start: 202307, end: 202310
  5. DOXORUBICIN HYDROCHLORIDE [Suspect]
     Active Substance: DOXORUBICIN HYDROCHLORIDE
     Indication: Triple negative breast cancer
     Dosage: DOSE DESCRIPTION : 60 MILLIGRAM/SQ. METER, Q3W
     Route: 041
     Dates: start: 202311, end: 202401
  6. CYCLOPHOSPHAMIDE [Suspect]
     Active Substance: CYCLOPHOSPHAMIDE
     Indication: Triple negative breast cancer
     Dosage: DOSE DESCRIPTION : 600 MILLIGRAM, Q3W
     Route: 041
     Dates: start: 202311, end: 202401

REACTIONS (3)
  - Immune-mediated adverse reaction [Unknown]
  - Malignant neoplasm progression [Fatal]
  - Myocarditis [Fatal]

NARRATIVE: CASE EVENT DATE: 20240712
